FAERS Safety Report 6983799-X (Version None)
Quarter: 2010Q3

REPORT INFORMATION
  Report Type: 
  Country: None (occurrence: None)
  Receive Date: 20100914
  Receipt Date: 20090205
  Transmission Date: 20110219
  Serious: No
  Sender: FDA-Public Use
  Company Number: US-WYE-H08111609

PATIENT
  Sex: Male
  Weight: 93.52 kg

DRUGS (6)
  1. ADVIL LIQUI-GELS [Suspect]
     Indication: ARTHRITIS
     Route: 048
     Dates: start: 20081201, end: 20090101
  2. ADVIL LIQUI-GELS [Suspect]
     Indication: PAIN
  3. METOPROLOL TARTRATE [Concomitant]
  4. STROVITE [Concomitant]
  5. NEXIUM [Concomitant]
  6. TERAZOSIN HCL [Concomitant]

REACTIONS (2)
  - ABDOMINAL PAIN UPPER [None]
  - FAECES DISCOLOURED [None]
